FAERS Safety Report 24206432 (Version 2)
Quarter: 2024Q3

REPORT INFORMATION
  Report Type: Spontaneous
  Country: DE (occurrence: DE)
  Receive Date: 20240813
  Receipt Date: 20240909
  Transmission Date: 20241017
  Serious: Yes (Death, Hospitalization, Other)
  Sender: SANDOZ
  Company Number: DE-BRISTOL-MYERS SQUIBB COMPANY-2024-069469

PATIENT
  Age: 68 Year
  Sex: Male
  Weight: 72 kg

DRUGS (19)
  1. FLUOROURACIL [Suspect]
     Active Substance: FLUOROURACIL
     Indication: Product used for unknown indication
     Dosage: 5096 MG, BIW
     Route: 042
     Dates: start: 20240402
  2. OXALIPLATIN [Suspect]
     Active Substance: OXALIPLATIN
     Indication: Gastric cancer
     Dosage: 166 MG, BIW
     Route: 042
     Dates: start: 20240402, end: 20240416
  3. OPDIVO [Suspect]
     Active Substance: NIVOLUMAB
     Indication: Gastric cancer
     Dosage: 240 MG BIW
     Route: 042
     Dates: start: 20240402
  4. PREDNISOLONE [Suspect]
     Active Substance: PREDNISOLONE
     Indication: Product used for unknown indication
     Dosage: UNK
     Route: 065
  5. ELIQUIS [Concomitant]
     Active Substance: APIXABAN
     Indication: Product used for unknown indication
     Dosage: 5.000MG
     Route: 048
  6. PANCRELIPASE [Concomitant]
     Active Substance: PANCRELIPASE\PANCRELIPASE AMYLASE\PANCRELIPASE LIPASE\PANCRELIPASE PROTEASE
     Indication: Product used for unknown indication
     Dosage: 25000 I.E
     Route: 048
  7. Novalgin [Concomitant]
     Indication: Product used for unknown indication
     Dosage: 1.000G
     Route: 048
  8. OLMESARTAN [Concomitant]
     Active Substance: OLMESARTAN
     Indication: Product used for unknown indication
     Dosage: 20.000MG QD
     Route: 048
  9. SPIRONOLACTONE [Concomitant]
     Active Substance: SPIRONOLACTONE
     Dosage: 25.000MG QD
     Route: 048
     Dates: start: 20240703, end: 20240715
  10. SPIRONOLACTONE [Concomitant]
     Active Substance: SPIRONOLACTONE
     Dosage: 25.000MG
     Route: 048
     Dates: start: 20240402, end: 20240407
  11. SPIRONOLACTONE [Concomitant]
     Active Substance: SPIRONOLACTONE
     Dosage: 25.000MG
     Route: 048
     Dates: start: 20240408, end: 20240702
  12. SPIRONOLACTONE [Concomitant]
     Active Substance: SPIRONOLACTONE
     Indication: Product used for unknown indication
     Dosage: 50.000MG
     Route: 048
     Dates: start: 20240408, end: 20240702
  13. SPIRONOLACTONE [Concomitant]
     Active Substance: SPIRONOLACTONE
     Dosage: 50.000MG
     Route: 048
     Dates: start: 20240716
  14. Sucralfort [Concomitant]
     Indication: Product used for unknown indication
     Dosage: 1.000G
     Route: 048
  15. TAMSULOSIN [Concomitant]
     Active Substance: TAMSULOSIN
     Indication: Product used for unknown indication
     Dosage: 0.400MG QD
     Route: 048
  16. TORSEMIDE [Concomitant]
     Active Substance: TORSEMIDE
     Indication: Product used for unknown indication
     Dosage: 10.000MG QD
     Route: 042
     Dates: start: 20240402, end: 20240407
  17. TORSEMIDE [Concomitant]
     Active Substance: TORSEMIDE
     Dosage: 10.000MG QD
     Route: 042
     Dates: start: 20240611, end: 20240806
  18. TORSEMIDE [Concomitant]
     Active Substance: TORSEMIDE
     Dosage: 10.000MG
     Route: 042
     Dates: start: 20240408, end: 20240513
  19. TORSEMIDE [Concomitant]
     Active Substance: TORSEMIDE
     Dosage: 10.000MG
     Route: 042
     Dates: start: 20240514, end: 20240610

REACTIONS (9)
  - Drug-induced liver injury [Fatal]
  - Type 3 diabetes mellitus [Unknown]
  - Rash pruritic [Recovered/Resolved]
  - Hypokalaemia [Unknown]
  - Blood glucose increased [Unknown]
  - Testicular swelling [Not Recovered/Not Resolved]
  - Blood alkaline phosphatase increased [Unknown]
  - Lymphopenia [Unknown]
  - Hypocalcaemia [Recovered/Resolved]

NARRATIVE: CASE EVENT DATE: 20240416
